FAERS Safety Report 9367267 (Version 1)
Quarter: 2013Q2

REPORT INFORMATION
  Report Type: Report from Study
  Country: US (occurrence: US)
  Receive Date: 20130625
  Receipt Date: 20130625
  Transmission Date: 20140414
  Serious: Yes (Other)
  Sender: FDA-Public Use
  Company Number: US-ABBOTT-13P-163-1109357-00

PATIENT
  Age: 21 Year
  Sex: Female

DRUGS (13)
  1. HUMIRA [Suspect]
     Indication: PSORIASIS
     Route: 058
     Dates: start: 2009, end: 201004
  2. HUMIRA [Suspect]
     Dosage: BEGAN WITH LOADING DOSE
     Route: 058
     Dates: start: 201006, end: 201009
  3. HUMIRA [Suspect]
     Route: 058
     Dates: start: 201011, end: 201109
  4. VITAMIN D [Concomitant]
     Indication: VITAMIN SUPPLEMENTATION
  5. ABILIFY [Concomitant]
     Indication: DEPRESSION
  6. EFFEXOR XR [Concomitant]
     Indication: DEPRESSION
  7. PHENTERMINE [Concomitant]
     Indication: WEIGHT CONTROL
  8. AMBIEN [Concomitant]
     Indication: INSOMNIA
     Dosage: 1 AT BEDTIME FOR SLEEP
  9. VALIUM [Concomitant]
     Indication: PANIC ATTACK
     Dosage: .5-1 TAB EVERY 8 HOURS AS NEEDED
  10. LIDOCAINE [Concomitant]
     Indication: PRODUCT USED FOR UNKNOWN INDICATION
     Dosage: TO APPLY TO AREA BEFORE INJECTIONS
  11. TOPROL [Concomitant]
     Indication: HYPERTENSION
  12. NORCO [Concomitant]
     Indication: HEADACHE
     Dosage: 1 EVERY 4 HOURS AS NEEDED
  13. FIORICET [Concomitant]
     Indication: HEADACHE
     Dosage: EVERY 2 - 4 HOURS AS NEEDED

REACTIONS (2)
  - Abortion spontaneous [Unknown]
  - Methylenetetrahydrofolate reductase deficiency [Unknown]
